FAERS Safety Report 12808952 (Version 1)
Quarter: 2016Q4

REPORT INFORMATION
  Report Type: Spontaneous
  Country: GB (occurrence: GB)
  Receive Date: 20161004
  Receipt Date: 20161004
  Transmission Date: 20170207
  Serious: Yes (Other)
  Sender: FDA-Public Use
  Company Number: GB-PFIZER INC-2016455352

PATIENT
  Age: 74 Year
  Sex: Male

DRUGS (3)
  1. TAZOCIN [Suspect]
     Active Substance: PIPERACILLIN SODIUM\TAZOBACTAM SODIUM
     Dosage: 4.5 G, 3X/DAY
     Route: 042
     Dates: start: 20160908
  2. DIGOXIN. [Concomitant]
     Active Substance: DIGOXIN
  3. METARAMINOL [Suspect]
     Active Substance: METARAMINOL
     Dosage: 0.5 - 10 MG/ HOUR
     Route: 042

REACTIONS (3)
  - Cough [Unknown]
  - Induration [Unknown]
  - Rash erythematous [Not Recovered/Not Resolved]
